FAERS Safety Report 10061903 (Version 1)
Quarter: 2014Q2

REPORT INFORMATION
  Report Type: Spontaneous
  Country: JP (occurrence: JP)
  Receive Date: 20140407
  Receipt Date: 20140407
  Transmission Date: 20141212
  Serious: Yes (Other)
  Sender: FDA-Public Use
  Company Number: JP-009507513-1404JPN003767

PATIENT
  Age: 57 Year
  Sex: Male

DRUGS (4)
  1. JANUVIA TABLETS 50MG [Suspect]
     Dosage: UNK
     Route: 048
     Dates: start: 201403
  2. BASEN [Concomitant]
     Dosage: UNK
     Dates: start: 201403
  3. ARTIST [Concomitant]
     Dosage: UNK
     Dates: start: 201403
  4. AMARYL [Concomitant]
     Dosage: FORMULATION: POR
     Route: 048
     Dates: end: 201403

REACTIONS (2)
  - Hypoglycaemic coma [Unknown]
  - Hypoglycaemic encephalopathy [Unknown]
